FAERS Safety Report 4822119-3 (Version None)
Quarter: 2005Q4

REPORT INFORMATION
  Report Type: 
  Country: None (occurrence: None)
  Receive Date: 20051103
  Receipt Date: 20051019
  Transmission Date: 20060501
  Serious: Yes (Death, Life-Threatening)
  Sender: FDA-Public Use
  Company Number: JP_051007750

PATIENT
  Age: 55 Year
  Sex: Female
  Weight: 55 kg

DRUGS (5)
  1. GEMZAR [Suspect]
     Indication: PANCREATIC CARCINOMA STAGE IV
     Dosage: 1200 MG OTHER
     Dates: start: 20050814, end: 20050825
  2. LAMIVUDINE [Concomitant]
  3. URSODIOL [Concomitant]
  4. OMEPRAZOLE [Concomitant]
  5. BIO THREE [Concomitant]

REACTIONS (5)
  - BLOOD PRESSURE DECREASED [None]
  - BONE MARROW FAILURE [None]
  - DISSEMINATED INTRAVASCULAR COAGULATION [None]
  - PYREXIA [None]
  - RESPIRATORY FAILURE [None]
